FAERS Safety Report 24937499 (Version 1)
Quarter: 2025Q1

REPORT INFORMATION
  Report Type: Spontaneous
  Country: US (occurrence: None)
  Receive Date: 20250205
  Receipt Date: 20250205
  Transmission Date: 20250409
  Serious: Yes (Congenital Anomaly)
  Sender: FDA-CTU
  Company Number: None

PATIENT
  Age: 0 Year
  Sex: Female
  Weight: 3.6 kg

DRUGS (1)
  1. PROPYLTHIOURACIL [Suspect]
     Active Substance: PROPYLTHIOURACIL
     Indication: Graves^ disease
     Dates: start: 20060515, end: 20100909

REACTIONS (6)
  - Exposure during pregnancy [None]
  - Maternal drugs affecting foetus [None]
  - Naevus flammeus [None]
  - Vascular malformation [None]
  - Hypotonia [None]
  - Neonatal disorder [None]

NARRATIVE: CASE EVENT DATE: 20090428
